FAERS Safety Report 5734415-6 (Version None)
Quarter: 2008Q2

REPORT INFORMATION
  Report Type: 
  Country: None (occurrence: None)
  Receive Date: 20080508
  Receipt Date: 20080508
  Transmission Date: 20081010
  Serious: Yes (Disabling)
  Sender: FDA-Public Use
  Company Number: None

PATIENT
  Age: 59 Year
  Sex: Female
  Weight: 86.1834 kg

DRUGS (2)
  1. CREST PRO-HEALTH ORAL RINSE PROCTOR + GAMBLE/CREST [Suspect]
     Indication: DENTAL DISORDER PROPHYLAXIS
     Dosage: 4 TEASPOONS TWICE A DAY PO
     Route: 048
     Dates: start: 20080101, end: 20080507
  2. CRESTPRO-HEALTH TOOTH PASTE STANNOUS FLORIDE 0.454% PROCTOR AND GAMBLE [Suspect]
     Indication: DENTAL DISORDER PROPHYLAXIS
     Dosage: FILL TOOTHBRUSH AFTER MEALS DENTAL
     Route: 004
     Dates: start: 20080101, end: 20080507

REACTIONS (3)
  - AGEUSIA [None]
  - HYPOAESTHESIA ORAL [None]
  - ORAL MUCOSAL EXFOLIATION [None]
